FAERS Safety Report 9230742 (Version 2)
Quarter: 2013Q4

REPORT INFORMATION
  Report Type: Spontaneous
  Country: US (occurrence: US)
  Receive Date: 20130415
  Receipt Date: 20131202
  Transmission Date: 20140711
  Serious: Yes (Other)
  Sender: FDA-Public Use
  Company Number: US-PFIZER INC-2013117759

PATIENT
  Age: 51 Year
  Sex: Male
  Weight: 190 kg

DRUGS (20)
  1. LYRICA [Suspect]
     Indication: NEUROPATHY PERIPHERAL
     Dosage: 50 MG, 3X/DAY
     Dates: start: 20130213, end: 201302
  2. LYRICA [Suspect]
     Dosage: 100 MG, 3X/DAY
     Dates: start: 201302
  3. LYRICA [Suspect]
     Dosage: 150 MG, 3X/DAY
  4. OXYCODONE [Concomitant]
     Dosage: 15 MG, 4X/DAY
     Route: 048
  5. LASIX [Concomitant]
     Dosage: 40 MG, 1X/DAY
  6. SPIRONOLACTONE [Concomitant]
     Dosage: 25 MG, 1X/DAY
  7. ISOSORBIDE [Concomitant]
     Dosage: 60 MG, 1X/DAY
     Route: 048
  8. WELLBUTRIN [Concomitant]
     Dosage: 100 MG, 3X/DAY
  9. HORSE CHESTNUT [Concomitant]
     Dosage: 300 MG, 1X/DAY
     Route: 048
  10. BUPROPION HCL [Concomitant]
     Dosage: 100 MG, 3X/DAY
     Route: 048
  11. FLUOCINONIDE [Concomitant]
     Dosage: 1 DF, 2X/DAY
     Route: 061
  12. FUROSEMIDE [Concomitant]
     Dosage: 40 MG, 1X/DAY
     Route: 048
  13. GABAPENTIN [Concomitant]
     Dosage: 600 MG, 1X/DAY
     Route: 048
  14. NYSTATIN [Concomitant]
     Dosage: 1 DF, 2X/DAY
     Route: 061
  15. NYSTATIN/TRIAMCINOLONE [Concomitant]
     Dosage: 1 DF, 2X/DAY
     Route: 061
  16. OMEPRAZOLE [Concomitant]
     Dosage: 20 MG, 1X/DAY
     Route: 048
  17. SULFADIAZINE SILVER [Concomitant]
     Dosage: 1 DF, UNK
     Route: 061
  18. TORSEMIDE [Concomitant]
     Dosage: 20 MG, 2X/DAY
     Route: 048
  19. BACTRIM DS [Concomitant]
     Dosage: 800 MG, 3X/DAY
     Route: 048
  20. TESTOSTERONE CIPIONATE [Concomitant]
     Dosage: 1 MG, MONTHLY
     Route: 030

REACTIONS (16)
  - Weight decreased [Unknown]
  - Abnormal weight gain [Unknown]
  - Local swelling [Unknown]
  - Dyspnoea exertional [Unknown]
  - Fluid retention [Unknown]
  - Abdominal distension [Unknown]
  - Exercise tolerance decreased [Recovered/Resolved]
  - Dry mouth [Unknown]
  - Dizziness [Unknown]
  - Night sweats [Recovered/Resolved]
  - Arthralgia [Recovered/Resolved]
  - Myalgia [Unknown]
  - Back pain [Unknown]
  - Dry skin [Unknown]
  - Fatigue [Unknown]
  - Spinal osteoarthritis [Unknown]
